FAERS Safety Report 24819845 (Version 2)
Quarter: 2025Q1

REPORT INFORMATION
  Report Type: Report from Study
  Country: JP (occurrence: JP)
  Receive Date: 20250108
  Receipt Date: 20250219
  Transmission Date: 20250409
  Serious: Yes (Death)
  Sender: AKEBIA THERAPEUTICS
  Company Number: JP-KERYX BIOPHARMACEUTICALS INC.-JP-AKEB-25-000005

PATIENT
  Age: 90 Year
  Sex: Male
  Weight: 57 kg

DRUGS (1)
  1. VADADUSTAT [Suspect]
     Active Substance: VADADUSTAT
     Indication: Nephrogenic anaemia
     Dosage: 300 MILLIGRAM, QD
     Route: 048
     Dates: start: 20221116, end: 20240227

REACTIONS (1)
  - Cardiac failure chronic [Fatal]

NARRATIVE: CASE EVENT DATE: 20240227
